FAERS Safety Report 12051205 (Version 1)
Quarter: 2016Q1

REPORT INFORMATION
  Report Type: Spontaneous
  Country: PL (occurrence: PL)
  Receive Date: 20160209
  Receipt Date: 20160209
  Transmission Date: 20160526
  Serious: Yes (Hospitalization)
  Sender: FDA-Public Use
  Company Number: PHHY2016PL014487

PATIENT
  Sex: Female
  Weight: 62 kg

DRUGS (1)
  1. DICLOFENAC [Suspect]
     Active Substance: DICLOFENAC
     Indication: PRODUCT USED FOR UNKNOWN INDICATION
     Dosage: 100 MG, UNK
     Route: 054
     Dates: start: 20151219, end: 20151220

REACTIONS (2)
  - Body temperature increased [Recovering/Resolving]
  - Rash maculo-papular [Recovering/Resolving]
